FAERS Safety Report 6161705-8 (Version None)
Quarter: 2009Q2

REPORT INFORMATION
  Report Type: 
  Country: None (occurrence: None)
  Receive Date: 20090417
  Receipt Date: 20090408
  Transmission Date: 20091009
  Serious: Yes (Hospitalization)
  Sender: FDA-Public Use
  Company Number: 20085989

PATIENT
  Age: 47 Year
  Sex: Female

DRUGS (9)
  1. LIORESAL [Suspect]
     Indication: MUSCLE SPASTICITY
     Dosage: 159.24 MCG, DAILY, INTRATHECAL
     Route: 037
  2. COUMADIN [Concomitant]
  3. AMITIZA [Concomitant]
  4. CYMBALTA [Concomitant]
  5. IMIPRAMINE [Concomitant]
  6. DITROPAN [Concomitant]
  7. NITROFURADANTIN [Concomitant]
  8. BONIVA [Concomitant]
  9. VITAMINS [Concomitant]

REACTIONS (5)
  - CARDIAC FAILURE CONGESTIVE [None]
  - EJECTION FRACTION DECREASED [None]
  - PNEUMONIA [None]
  - PULMONARY EMBOLISM [None]
  - VIRAL INFECTION [None]
